FAERS Safety Report 18263791 (Version 1)
Quarter: 2020Q3

REPORT INFORMATION
  Report Type: Spontaneous
  Country: US (occurrence: US)
  Receive Date: 20200914
  Receipt Date: 20200914
  Transmission Date: 20201103
  Serious: Yes (Hospitalization)
  Sender: FDA-Public Use
  Company Number: US-VERTEX PHARMACEUTICALS-2020-018080

PATIENT
  Sex: Male

DRUGS (11)
  1. SYMDEKO [Suspect]
     Active Substance: IVACAFTOR\TEZACAFTOR
     Indication: CYSTIC FIBROSIS
     Dosage: 100MG TEZACAFTOR/150MG IVACAFTOR, 150MG IVACAFTOR, BID
     Route: 048
  2. LANTUS [Concomitant]
     Active Substance: INSULIN GLARGINE
     Dosage: 2 UNITS, QD
  3. BOOST PLUS [Concomitant]
     Active Substance: DIETARY SUPPLEMENT
     Dosage: UNK
  4. PERTZYE [Concomitant]
     Active Substance: PANCRELIPASE AMYLASE\PANCRELIPASE LIPASE\PANCRELIPASE PROTEASE
     Dosage: UNK
  5. FAMOTIDINE. [Concomitant]
     Active Substance: FAMOTIDINE
     Dosage: 40 MG
  6. DEKASOFT [Concomitant]
     Dosage: UNK
  7. CYPROHEPTADINE. [Concomitant]
     Active Substance: CYPROHEPTADINE
     Dosage: 4 MG
  8. PULMOZYME [Concomitant]
     Active Substance: DORNASE ALFA
     Dosage: UNK
  9. OMEPRAZOLE. [Concomitant]
     Active Substance: OMEPRAZOLE
     Dosage: 40 MG
  10. IPRATROPIUM/ALBUTEROL [Concomitant]
     Active Substance: ALBUTEROL\IPRATROPIUM
     Dosage: UNK
  11. MONTELUKAST [Concomitant]
     Active Substance: MONTELUKAST SODIUM
     Dosage: 10 MG

REACTIONS (3)
  - Viral infection [Recovering/Resolving]
  - Pyrexia [Recovering/Resolving]
  - Lethargy [Recovering/Resolving]
